FAERS Safety Report 18453823 (Version 4)
Quarter: 2021Q1

REPORT INFORMATION
  Report Type: Spontaneous
  Country: US (occurrence: US)
  Receive Date: 20201102
  Receipt Date: 20210311
  Transmission Date: 20210419
  Serious: No
  Sender: FDA-Public Use
  Company Number: US-CELGENEUS-USA-20201007079

PATIENT
  Age: 65 Year
  Sex: Female

DRUGS (5)
  1. ZEPOSIA [Suspect]
     Active Substance: OZANIMOD HYDROCHLORIDE
     Dosage: .92 MILLIGRAM
     Route: 048
     Dates: start: 2020
  2. VERAPAMIL [Concomitant]
     Active Substance: VERAPAMIL HYDROCHLORIDE
     Indication: BLOOD PRESSURE MEASUREMENT
     Route: 065
  3. ZEPOSIA [Suspect]
     Active Substance: OZANIMOD HYDROCHLORIDE
     Indication: MULTIPLE SCLEROSIS
     Dosage: 0.23 MG AND 0.46 MG
     Route: 048
     Dates: start: 20201020
  4. ARIMIDEX [Concomitant]
     Active Substance: ANASTROZOLE
     Indication: BREAST CANCER
     Route: 065
     Dates: start: 20181101
  5. ZESTRIL [Concomitant]
     Active Substance: LISINOPRIL
     Indication: BLOOD PRESSURE MEASUREMENT
     Route: 065

REACTIONS (10)
  - Peripheral swelling [Not Recovered/Not Resolved]
  - Memory impairment [Not Recovered/Not Resolved]
  - Blood pressure abnormal [Recovered/Resolved]
  - Vision blurred [Recovered/Resolved]
  - Fall [Not Recovered/Not Resolved]
  - Multiple sclerosis [Not Recovered/Not Resolved]
  - Blood glucose increased [Recovered/Resolved]
  - Pain in extremity [Recovering/Resolving]
  - Gait disturbance [Not Recovered/Not Resolved]
  - Fatigue [Recovered/Resolved]

NARRATIVE: CASE EVENT DATE: 20201021
